FAERS Safety Report 14950726 (Version 1)
Quarter: 2018Q2

REPORT INFORMATION
  Report Type: Spontaneous
  Country: TW (occurrence: TW)
  Receive Date: 20180530
  Receipt Date: 20180530
  Transmission Date: 20180711
  Serious: Yes (Other)
  Sender: FDA-Public Use
  Company Number: TW-ACCORD-063930

PATIENT
  Age: 55 Year
  Sex: Female

DRUGS (4)
  1. FOLINIC ACID [Suspect]
     Active Substance: LEUCOVORIN
     Indication: PANCREATIC CARCINOMA STAGE III
     Dosage: INDUCTION THERAPY, 48-H INFUSION ON D1-2 BIWEEKLY
     Dates: start: 201009
  2. OXALIPLATIN. [Suspect]
     Active Substance: OXALIPLATIN
     Indication: PANCREATIC CARCINOMA STAGE III
     Dosage: INDUCTION THERAPY, 2-H INFUSION ON D1
     Dates: start: 201009
  3. GEMCITABINE [Suspect]
     Active Substance: GEMCITABINE\GEMCITABINE HYDROCHLORIDE
     Indication: PANCREATIC CARCINOMA STAGE III
     Dosage: INDUCTION THERAPY, FIXED-DOSE RATE (10 MG/M2/MIN)
     Dates: start: 201009
  4. FLUOROURACIL. [Suspect]
     Active Substance: FLUOROURACIL
     Indication: PANCREATIC CARCINOMA STAGE III
     Dosage: INDUCTION THERAPY, 48-H INFUSION ON D1-2 BIWEEKLY
     Dates: start: 201009

REACTIONS (7)
  - Diarrhoea [Unknown]
  - Stomatitis [Unknown]
  - Leukopenia [Unknown]
  - Neuropathy peripheral [Unknown]
  - Vomiting [Unknown]
  - Anaemia [Unknown]
  - Nausea [Unknown]

NARRATIVE: CASE EVENT DATE: 2010
